FAERS Safety Report 16999404 (Version 1)
Quarter: 2019Q4

REPORT INFORMATION
  Report Type: Spontaneous
  Country: US (occurrence: US)
  Receive Date: 20190925
  Receipt Date: 20190925
  Transmission Date: 20200122
  Serious: No
  Sender: FDA-Public Use
  Company Number: None

PATIENT

DRUGS (2)
  1. THIORIDAZINE [Suspect]
     Active Substance: THIORIDAZINE
  2. THORAZINE [Suspect]
     Active Substance: CHLORPROMAZINE

REACTIONS (4)
  - Device computer issue [None]
  - Product dispensing error [None]
  - Wrong product administered [None]
  - Transcription medication error [None]
